FAERS Safety Report 13499260 (Version 1)
Quarter: 2017Q2

REPORT INFORMATION
  Report Type: Spontaneous
  Country: MY (occurrence: MY)
  Receive Date: 20170501
  Receipt Date: 20170501
  Transmission Date: 20170830
  Serious: Yes (Other)
  Sender: FDA-Public Use
  Company Number: MY-GLAXOSMITHKLINE-MY2017GSK060826

PATIENT
  Age: 35 Year
  Sex: Female
  Weight: 60 kg

DRUGS (4)
  1. ZINACEF [Suspect]
     Active Substance: CEFUROXIME SODIUM
     Indication: PYREXIA
  2. UNASYN [Suspect]
     Active Substance: AMPICILLIN SODIUM\SULBACTAM SODIUM
     Indication: PYREXIA
  3. ZINACEF [Suspect]
     Active Substance: CEFUROXIME SODIUM
     Indication: URINARY TRACT INFECTION
     Dosage: UNK
  4. UNASYN [Suspect]
     Active Substance: AMPICILLIN SODIUM\SULBACTAM SODIUM
     Indication: URINARY TRACT INFECTION
     Dosage: 375 MG, BID

REACTIONS (2)
  - Drug ineffective [Unknown]
  - Pyelonephritis [Unknown]
